FAERS Safety Report 5568042-0 (Version None)
Quarter: 2007Q4

REPORT INFORMATION
  Report Type: 
  Country: None (occurrence: None)
  Receive Date: 20071218
  Receipt Date: 20071204
  Transmission Date: 20080405
  Serious: Yes (Other)
  Sender: FDA-Public Use
  Company Number: 07-002378

PATIENT
  Age: 43 Year
  Sex: Female
  Weight: 58 kg

DRUGS (3)
  1. TACLONEX [Suspect]
     Indication: ECZEMA
     Dosage: 0.005/0.064%, BID, TOPICAL
     Route: 061
     Dates: start: 20071101, end: 20071203
  2. TACLONEX [Suspect]
     Indication: PRURITUS
     Dosage: 0.005/0.064%, BID, TOPICAL
     Route: 061
     Dates: start: 20071101, end: 20071203
  3. DIOVAN [Concomitant]

REACTIONS (6)
  - ANOREXIA [None]
  - BLOOD PRESSURE INCREASED [None]
  - HEADACHE [None]
  - HEART RATE INCREASED [None]
  - INSOMNIA [None]
  - INTENTIONAL OVERDOSE [None]
